FAERS Safety Report 26096803 (Version 2)
Quarter: 2025Q4

REPORT INFORMATION
  Report Type: Report from Study
  Country: ZA (occurrence: ZA)
  Receive Date: 20251127
  Receipt Date: 20251204
  Transmission Date: 20260117
  Serious: Yes (Other)
  Sender: TEVA
  Company Number: ZA-TEVA-VS-3394502

PATIENT
  Age: 25 Year
  Sex: Female
  Weight: 105 kg

DRUGS (3)
  1. FINGOLIMOD HYDROCHLORIDE [Suspect]
     Active Substance: FINGOLIMOD HYDROCHLORIDE
     Indication: Multiple sclerosis
     Route: 048
     Dates: start: 20250424
  2. ESCITALOPRAM [Concomitant]
     Active Substance: ESCITALOPRAM OXALATE
     Indication: Insomnia
     Dates: start: 2020
  3. ESCITALOPRAM [Concomitant]
     Active Substance: ESCITALOPRAM OXALATE
     Indication: Insomnia
     Dates: start: 2025

REACTIONS (1)
  - Amenorrhoea [Recovering/Resolving]

NARRATIVE: CASE EVENT DATE: 20250101
